FAERS Safety Report 23402928 (Version 1)
Quarter: 2024Q1

REPORT INFORMATION
  Report Type: Spontaneous
  Country: CH (occurrence: CH)
  Receive Date: 20240115
  Receipt Date: 20240115
  Transmission Date: 20240410
  Serious: Yes (Other)
  Sender: FDA-Public Use
  Company Number: None

PATIENT
  Age: 75 Year
  Sex: Male
  Weight: 105.2 kg

DRUGS (15)
  1. XARELTO [Interacting]
     Active Substance: RIVAROXABAN
     Indication: Atrial fibrillation
     Dosage: 10 MG, UNK
     Route: 048
     Dates: end: 20231222
  2. ASPIRIN [Interacting]
     Active Substance: ASPIRIN
     Indication: Product used for unknown indication
     Dosage: 100 MG, UNK
     Route: 048
  3. ESOMEPRAZOL +PHARMA [Concomitant]
  4. FOLIC ACID [Concomitant]
     Active Substance: FOLIC ACID
  5. SPIRONOLACTONE [Concomitant]
     Active Substance: SPIRONOLACTONE
  6. MELATONIN [Concomitant]
     Active Substance: MELATONIN
  7. DUPHALAC [Concomitant]
     Active Substance: LACTULOSE
  8. ENTRESTO [Concomitant]
     Active Substance: SACUBITRIL\VALSARTAN
  9. EZETIMIB +PHARMA [Concomitant]
  10. IRON POLYMALTOSE [Concomitant]
     Active Substance: IRON POLYMALTOSE
  11. METOPROLOL [Concomitant]
     Active Substance: METOPROLOL
  12. TORSEMIDE [Concomitant]
     Active Substance: TORSEMIDE
  13. TOVIAZ [Concomitant]
     Active Substance: FESOTERODINE FUMARATE
  14. ANORO ELLIPTA [Concomitant]
     Active Substance: UMECLIDINIUM BROMIDE\VILANTEROL TRIFENATATE
  15. NOVALGIN (METAMIZOLE SODIUM) [Concomitant]
     Active Substance: METAMIZOLE SODIUM

REACTIONS (3)
  - Subdural haematoma [Recovering/Resolving]
  - Traumatic haematoma [Unknown]
  - Drug interaction [Recovered/Resolved]

NARRATIVE: CASE EVENT DATE: 20231222
